FAERS Safety Report 4456414-7 (Version None)
Quarter: 2004Q3

REPORT INFORMATION
  Report Type: 
  Country: None (occurrence: None)
  Receive Date: 20040917
  Receipt Date: 20040910
  Transmission Date: 20050211
  Serious: Yes (Hospitalization)
  Sender: FDA-Public Use
  Company Number: US-JNJFOC-20040807099

PATIENT
  Age: 80 Year
  Sex: Female
  Weight: 48.9885 kg

DRUGS (2)
  1. PEPCID COMPLETE [Suspect]
     Indication: GASTRITIS
     Dosage: 1 TABLET AT 7AM ON 16-AUG-04 AND 1 TABLET AT NIGHT ON 19-AUG-04
     Dates: start: 20040816, end: 20040819
  2. PEPCID COMPLETE [Suspect]
     Indication: HIATUS HERNIA
     Dosage: 1 TABLET AT 7AM ON 16-AUG-04 AND 1 TABLET AT NIGHT ON 19-AUG-04
     Dates: start: 20040816, end: 20040819

REACTIONS (2)
  - ATRIAL FIBRILLATION [None]
  - FEELING ABNORMAL [None]
